FAERS Safety Report 5649208-8 (Version None)
Quarter: 2008Q1

REPORT INFORMATION
  Report Type: 
  Country: None (occurrence: None)
  Receive Date: 20080304
  Receipt Date: 20071129
  Transmission Date: 20080703
  Serious: No
  Sender: FDA-Public Use
  Company Number: US-BAYER-200715162NA

PATIENT
  Sex: Female
  Weight: 102 kg

DRUGS (2)
  1. ULTRAVIST (PHARMACY BULK) [Suspect]
     Indication: COMPUTERISED TOMOGRAM
     Dosage: TOTAL DAILY DOSE: 90 ML
     Route: 042
     Dates: start: 20071129, end: 20071129
  2. PERCOCET [Concomitant]

REACTIONS (2)
  - EYE SWELLING [None]
  - URTICARIA [None]
